FAERS Safety Report 5719093-4 (Version None)
Quarter: 2008Q2

REPORT INFORMATION
  Report Type: 
  Country: None (occurrence: None)
  Receive Date: 20080423
  Receipt Date: 20080421
  Transmission Date: 20081010
  Serious: Yes (Death, Life-Threatening)
  Sender: FDA-Public Use
  Company Number: THQ2008A00549

PATIENT
  Age: 85 Year
  Sex: Male

DRUGS (1)
  1. LUCRIN PDS DEPOT (LEUPROLIDE ACETATE) [Suspect]
     Indication: PROSTATE CANCER
     Dosage: 11.25 MG (11.25 MG, 1 IN 3 M) SUBCUTANEOUS
     Route: 058
     Dates: start: 20071017, end: 20071128

REACTIONS (1)
  - CARDIAC FAILURE [None]
